FAERS Safety Report 24087144 (Version 1)
Quarter: 2024Q3

REPORT INFORMATION
  Report Type: Spontaneous
  Country: GB (occurrence: GB)
  Receive Date: 20240713
  Receipt Date: 20240713
  Transmission Date: 20241017
  Serious: Yes (Hospitalization, Disabling, Other)
  Sender: TORRENT
  Company Number: None

PATIENT
  Sex: Male

DRUGS (1)
  1. MONTELUKAST [Suspect]
     Active Substance: MONTELUKAST SODIUM
     Indication: Product used for unknown indication
     Dosage: UNKNOWN
     Route: 065

REACTIONS (4)
  - Medication error [Unknown]
  - Paediatric acute-onset neuropsychiatric syndrome [Not Recovered/Not Resolved]
  - Obsessive-compulsive disorder [Unknown]
  - Abnormal behaviour [Unknown]
